FAERS Safety Report 16321021 (Version 2)
Quarter: 2019Q2

REPORT INFORMATION
  Report Type: Spontaneous
  Country: LT (occurrence: LT)
  Receive Date: 20190516
  Receipt Date: 20190524
  Transmission Date: 20190711
  Serious: Yes (Hospitalization)
  Sender: FDA-Public Use
  Company Number: PHHY2019LT107858

PATIENT
  Age: 56 Year
  Sex: Female

DRUGS (5)
  1. RIVAROXABAN [Suspect]
     Active Substance: RIVAROXABAN
     Indication: ANTIPHOSPHOLIPID SYNDROME
     Dosage: 20 MG, QD
     Route: 065
  2. HYDROXYCHLOROQUINE [Concomitant]
     Active Substance: HYDROXYCHLOROQUINE
     Indication: PRODUCT USED FOR UNKNOWN INDICATION
     Dosage: 200 MG, BID
     Route: 065
  3. SPIRONOLACTONE. [Suspect]
     Active Substance: SPIRONOLACTONE
     Indication: ANTIPHOSPHOLIPID SYNDROME
     Dosage: 25 MG, QD
     Route: 065
  4. BETAXOLOL. [Suspect]
     Active Substance: BETAXOLOL
     Indication: ANTIPHOSPHOLIPID SYNDROME
     Dosage: 20 MG, QD
     Route: 065
  5. HYDROCHLOROTHIAZIDE,VALSARTAN [Suspect]
     Active Substance: HYDROCHLOROTHIAZIDE\VALSARTAN
     Indication: ANTIPHOSPHOLIPID SYNDROME
     Dosage: UNK UNK, QD (160/25 MG ONCE PER DAY)
     Route: 065

REACTIONS (4)
  - Product use in unapproved indication [Unknown]
  - Dyspnoea at rest [Unknown]
  - Fear of death [Unknown]
  - Palpitations [Unknown]
